FAERS Safety Report 17834576 (Version 1)
Quarter: 2020Q2

REPORT INFORMATION
  Report Type: Spontaneous
  Country: US (occurrence: US)
  Receive Date: 20200528
  Receipt Date: 20200528
  Transmission Date: 20200714
  Serious: Yes (Hospitalization)
  Sender: FDA-Public Use
  Company Number: None

PATIENT
  Age: 55 Year
  Sex: Female
  Weight: 65.4 kg

DRUGS (1)
  1. ASPIRIN. [Suspect]
     Active Substance: ASPIRIN
     Dates: end: 20200517

REACTIONS (4)
  - Chest pain [None]
  - Breast cancer recurrent [None]
  - Dyspnoea [None]
  - Pleural effusion [None]

NARRATIVE: CASE EVENT DATE: 20200517
